FAERS Safety Report 5330587-6 (Version None)
Quarter: 2007Q2

REPORT INFORMATION
  Report Type: 
  Country: None (occurrence: None)
  Receive Date: 20070516
  Receipt Date: 20070508
  Transmission Date: 20071010
  Serious: Yes (Hospitalization)
  Sender: FDA-Public Use
  Company Number: E2090-00230-SPO-JP

PATIENT
  Age: 77 Year
  Sex: Female

DRUGS (1)
  1. ZONISAMIDE [Suspect]
     Indication: EPILEPSY
     Dosage: 200 MG, 1 IN 1 D, ORAL
     Route: 048
     Dates: start: 20070327, end: 20070409

REACTIONS (3)
  - EOSINOPHIL COUNT INCREASED [None]
  - PYREXIA [None]
  - RASH GENERALISED [None]
